FAERS Safety Report 12158622 (Version 1)
Quarter: 2016Q1

REPORT INFORMATION
  Report Type: Report from Study
  Country: US (occurrence: US)
  Receive Date: 20160308
  Receipt Date: 20160308
  Transmission Date: 20160526
  Serious: Yes (Other)
  Sender: FDA-Public Use
  Company Number: US-ROCHE-1382857

PATIENT
  Sex: Male
  Weight: 70.6 kg

DRUGS (12)
  1. XELODA [Suspect]
     Active Substance: CAPECITABINE
     Indication: COLON CANCER
     Dosage: X 14 DAYS Q3 WEEKS
     Route: 048
     Dates: start: 20130301
  2. XELODA [Suspect]
     Active Substance: CAPECITABINE
     Dosage: X 14 DAYS Q3 WEEKS
     Route: 048
     Dates: start: 20140324
  3. OMEPRAZOLE MAGNESIUM. [Concomitant]
     Active Substance: OMEPRAZOLE MAGNESIUM
     Route: 048
  4. XELODA [Suspect]
     Active Substance: CAPECITABINE
     Dosage: 500MG 6 TABLET 1TIME FOR 14DYAS AND OFF FOR 7 DAYS
     Route: 048
  5. XELODA [Suspect]
     Active Substance: CAPECITABINE
     Dosage: 500MG 3 TAB BID FOR X 14 DAYS Q3 WEEKS
     Route: 048
  6. FERROUS SULFATE [Concomitant]
     Active Substance: FERROUS SULFATE\FERROUS SULFATE, DRIED
     Route: 048
  7. IRINOTECAN HYDROCHLORIDE. [Concomitant]
     Active Substance: IRINOTECAN HYDROCHLORIDE
     Indication: COLON CANCER
     Route: 065
     Dates: start: 20140324
  8. CIPROFLOXACIN HCL [Concomitant]
     Active Substance: CIPROFLOXACIN HYDROCHLORIDE
     Dosage: X 7 DAYS IF DEVELOP FEVER MORE THAT 100.4
     Route: 048
  9. OXALIPLATIN. [Concomitant]
     Active Substance: OXALIPLATIN
     Indication: COLON CANCER
     Route: 065
     Dates: start: 20130301
  10. PROCHLORPERAZINE MALEATE. [Concomitant]
     Active Substance: PROCHLORPERAZINE MALEATE
     Indication: NAUSEA
     Route: 048
  11. XELODA [Suspect]
     Active Substance: CAPECITABINE
     Dosage: X 14 DAYS Q3 WEEKS
     Route: 048
     Dates: start: 20130417
  12. XELODA [Suspect]
     Active Substance: CAPECITABINE
     Dosage: 14 DAYS ON AND 7 DAYS OFF
     Route: 048

REACTIONS (12)
  - Malaise [Unknown]
  - Abdominal discomfort [Recovered/Resolved]
  - Fatigue [Not Recovered/Not Resolved]
  - Gastrointestinal haemorrhage [Unknown]
  - Constipation [Unknown]
  - Abdominal distension [Unknown]
  - Faeces discoloured [Unknown]
  - Weight decreased [Unknown]
  - Amnesia [Unknown]
  - Drug dose omission [Unknown]
  - Decreased appetite [Not Recovered/Not Resolved]
  - Anaemia [Unknown]
